FAERS Safety Report 24086233 (Version 1)
Quarter: 2024Q3

REPORT INFORMATION
  Report Type: Spontaneous
  Country: FR (occurrence: None)
  Receive Date: 20240712
  Receipt Date: 20240712
  Transmission Date: 20241017
  Serious: Yes (Other)
  Sender: ASTRAZENECA
  Company Number: 2024A158984

PATIENT
  Age: 64 Year
  Sex: Male
  Weight: 64 kg

DRUGS (2)
  1. DURVALUMAB [Suspect]
     Active Substance: DURVALUMAB
     Indication: Non-small cell lung cancer
  2. CARBOPLATIN\PACLITAXEL [Concomitant]
     Active Substance: CARBOPLATIN\PACLITAXEL

REACTIONS (6)
  - Malignant neoplasm progression [Unknown]
  - Metastases to lymph nodes [Unknown]
  - Pneumonitis [Unknown]
  - Hyperthyroidism [Unknown]
  - Nausea [Unknown]
  - Vomiting [Unknown]
